FAERS Safety Report 20076867 (Version 2)
Quarter: 2021Q4

REPORT INFORMATION
  Report Type: Spontaneous
  Country: GB (occurrence: GB)
  Receive Date: 20211116
  Receipt Date: 20211213
  Transmission Date: 20220303
  Serious: Yes (Other)
  Sender: FDA-Public Use
  Company Number: None

PATIENT
  Age: 68 Year
  Sex: Male
  Weight: 78 kg

DRUGS (9)
  1. AXITINIB [Suspect]
     Active Substance: AXITINIB
     Indication: Renal cancer metastatic
     Dosage: 5 MG, 2X/DAY
     Route: 048
     Dates: start: 20200701, end: 20210722
  2. AXITINIB [Suspect]
     Active Substance: AXITINIB
     Dosage: 5 MG, 2X/DAY
     Route: 048
     Dates: start: 20210804, end: 20210908
  3. AVELUMAB [Suspect]
     Active Substance: AVELUMAB
     Indication: Renal cancer metastatic
     Dosage: 800 MG
     Route: 042
     Dates: start: 20200701, end: 20210722
  4. AVELUMAB [Suspect]
     Active Substance: AVELUMAB
     Dosage: 800 MG
     Route: 042
     Dates: start: 20210804
  5. AMLODIPINE [Concomitant]
     Active Substance: AMLODIPINE BESYLATE
     Indication: Ill-defined disorder
     Dosage: UNK
  6. RAMIPRIL [Concomitant]
     Active Substance: RAMIPRIL
     Indication: Ill-defined disorder
     Dosage: UNK
  7. CHLORPHENIRAMINE [Concomitant]
     Active Substance: CHLORPHENIRAMINE
     Indication: Premedication
     Dosage: UNK
     Route: 042
  8. ACETAMINOPHEN [Concomitant]
     Active Substance: ACETAMINOPHEN
     Indication: Premedication
     Dosage: UNK
     Route: 042
  9. HYDROCORTISONE [Concomitant]
     Active Substance: HYDROCORTISONE

REACTIONS (10)
  - Back pain [Recovered/Resolved]
  - Blood pressure increased [Recovering/Resolving]
  - Groin pain [Unknown]
  - Condition aggravated [Unknown]
  - Bone pain [Recovered/Resolved with Sequelae]
  - Arthritis [Unknown]
  - Dysphonia [Unknown]
  - Pain in extremity [Unknown]
  - Dysphonia [Not Recovered/Not Resolved]
  - Arthritis [Recovered/Resolved with Sequelae]

NARRATIVE: CASE EVENT DATE: 20200701
